FAERS Safety Report 16565883 (Version 9)
Quarter: 2020Q1

REPORT INFORMATION
  Report Type: Spontaneous
  Country: US (occurrence: US)
  Receive Date: 20190712
  Receipt Date: 20200219
  Transmission Date: 20200409
  Serious: Yes (Hospitalization, Other)
  Sender: FDA-Public Use
  Company Number: US-PFIZER INC-2019294686

PATIENT
  Age: 53 Year
  Sex: Female
  Weight: 77.11 kg

DRUGS (5)
  1. SODIUM BICARBONATE. [Suspect]
     Active Substance: SODIUM BICARBONATE
     Indication: HYPOAESTHESIA
     Dosage: 2-4 ML PRIOR TO PELLET INSERTION PROCEDURE)
     Route: 058
     Dates: start: 20190225, end: 20190425
  2. SODIUM BICARBONATE. [Suspect]
     Active Substance: SODIUM BICARBONATE
     Dosage: UNK
  3. ESTRADIOL. [Concomitant]
     Active Substance: ESTRADIOL
     Indication: MENOPAUSE
     Dosage: 10 MG, UNK (Q 3-6 MOS)
     Dates: start: 20190225
  4. TESTOSTERONE. [Concomitant]
     Active Substance: TESTOSTERONE
     Indication: MENOPAUSE
     Dosage: 150 MG, UNK (Q 3-6 MOS)
     Dates: start: 20190225
  5. SODIUM BICARBONATE. [Suspect]
     Active Substance: SODIUM BICARBONATE
     Indication: ANAESTHESIA
     Dosage: UNK
     Dates: start: 2019

REACTIONS (9)
  - Injection site swelling [Recovering/Resolving]
  - Injection site scar [Not Recovered/Not Resolved]
  - Injection site pain [Recovering/Resolving]
  - Injection site infection [Not Recovered/Not Resolved]
  - Off label use [Unknown]
  - Skin laceration [Not Recovered/Not Resolved]
  - Drug ineffective for unapproved indication [Not Recovered/Not Resolved]
  - Injection site haemorrhage [Unknown]
  - Poor quality product administered [Unknown]

NARRATIVE: CASE EVENT DATE: 2019
